FAERS Safety Report 5150743-X (Version None)
Quarter: 2006Q4

REPORT INFORMATION
  Report Type: 
  Country: None (occurrence: None)
  Receive Date: 20061108
  Receipt Date: 20061031
  Transmission Date: 20070319
  Serious: Yes (Hospitalization)
  Sender: FDA-Public Use
  Company Number: T06-JPN-04268-01

PATIENT
  Age: 92 Year
  Sex: Male
  Weight: 58.1 kg

DRUGS (11)
  1. MEMANTINE HCL [Suspect]
     Indication: DEMENTIA ALZHEIMER'S TYPE
     Dates: start: 20060830, end: 20061004
  2. PITAVASTATIN CALCIUM [Concomitant]
  3. NICERGOLINE                 (NICERGOLINE) [Concomitant]
  4. DENOPAMINE [Concomitant]
  5. DIGESTIVE ENZYME PREPARATIONS [Concomitant]
  6. FAMOTIDINE [Concomitant]
  7. CITICOLINE [Concomitant]
  8. CYANOCOBALAMIN [Concomitant]
  9. THIAMINE DISULFIDE NITRATE [Concomitant]
  10. GLUCOSE [Concomitant]
  11. DONEPEZIL HYDROCHLORIDE [Concomitant]

REACTIONS (6)
  - CEREBRAL INFARCTION [None]
  - DEPRESSED LEVEL OF CONSCIOUSNESS [None]
  - FALL [None]
  - GAIT DISTURBANCE [None]
  - RESTLESSNESS [None]
  - SOMNOLENCE [None]
